FAERS Safety Report 8571358 (Version 2)
Quarter: 2013Q1

REPORT INFORMATION
  Report Type: Spontaneous
  Country: FR (occurrence: FR)
  Receive Date: 20120521
  Receipt Date: 20130128
  Transmission Date: 20140127
  Serious: Yes (Life-Threatening)
  Sender: FDA-Public Use
  Company Number: FR-ASTRAZENECA-2012SE30993

PATIENT
  Age: 55 Year
  Sex: Male

DRUGS (6)
  1. XYLOCAINE [Suspect]
     Indication: LOCAL ANAESTHESIA
     Dosage: ONCE/SINGLE ADMINISTRATION
     Route: 065
     Dates: start: 20120117, end: 20120117
  2. CARBOCAINE [Suspect]
     Indication: LOCAL ANAESTHESIA
     Dosage: ONCE/SINGLE ADMINISTRATION
     Route: 065
     Dates: start: 20120117, end: 20120117
  3. PROPOFOL [Suspect]
     Indication: ANAESTHESIA
     Dosage: ONCE/SINGLE ADMINISTRATION
     Route: 042
     Dates: start: 20120117, end: 20120117
  4. CELOCURINE [Suspect]
     Indication: ANAESTHESIA
     Dosage: ONCE/SINGLE ADMINISTRATION
     Route: 065
     Dates: start: 20120117, end: 20120117
  5. SUFENTANIL [Suspect]
     Indication: GENERAL ANAESTHESIA
     Dosage: ONCE/SINGLE ADMINISTRATION
     Route: 042
     Dates: start: 20120117, end: 20120117
  6. CEFAZOLINE [Suspect]
     Indication: ANTIBIOTIC PROPHYLAXIS
     Dosage: ONCE/SINGLE ADMINISTRATION
     Route: 042
     Dates: start: 20120117, end: 20120117

REACTIONS (4)
  - Shock [Recovered/Resolved]
  - Bronchospasm [Recovered/Resolved]
  - Histamine level increased [Recovered/Resolved]
  - Hypotension [Recovered/Resolved]
